FAERS Safety Report 6258258-2 (Version None)
Quarter: 2009Q3

REPORT INFORMATION
  Report Type: 
  Country: None (occurrence: None)
  Receive Date: 20090707
  Receipt Date: 20090702
  Transmission Date: 20100115
  Serious: Yes (Life-Threatening, Other)
  Sender: FDA-Public Use
  Company Number: IT-BRISTOL-MYERS SQUIBB COMPANY-14633440

PATIENT
  Age: 70 Year
  Sex: Female

DRUGS (3)
  1. DASATINIB [Suspect]
     Indication: MULTIPLE MYELOMA
     Dosage: ALSO TAKEN ON 03JUN09
     Route: 048
     Dates: start: 20090512, end: 20090518
  2. MELPHALAN [Suspect]
     Indication: MULTIPLE MYELOMA
     Route: 048
     Dates: start: 20090512, end: 20090515
  3. PREDNISONE [Suspect]
     Indication: MULTIPLE MYELOMA
     Route: 048
     Dates: start: 20090512, end: 20090515

REACTIONS (1)
  - DYSPNOEA [None]
